FAERS Safety Report 5642622-6 (Version None)
Quarter: 2008Q1

REPORT INFORMATION
  Report Type: 
  Country: None (occurrence: None)
  Receive Date: 20080227
  Receipt Date: 20080227
  Transmission Date: 20080703
  Serious: Yes (Hospitalization)
  Sender: FDA-Public Use
  Company Number: None

PATIENT
  Sex: Male
  Weight: 111.5849 kg

DRUGS (11)
  1. CLONIDINE [Suspect]
     Indication: HYPERTENSION
     Dosage: #3 TABS TAKEN PM ON 5/22/07;  #4 TABS TAKEN AM ON 5/23/07
     Dates: start: 20070522
  2. CLONIDINE [Suspect]
     Indication: HYPERTENSION
     Dosage: #3 TABS TAKEN PM ON 5/22/07;  #4 TABS TAKEN AM ON 5/23/07
     Dates: start: 20070523
  3. LEVOTHYROXINE SODIUM [Concomitant]
  4. FUROSEMIDE [Concomitant]
  5. COREG [Concomitant]
  6. CLONIDINE [Concomitant]
  7. ASPIRIN [Concomitant]
  8. HYTRIN [Concomitant]
  9. CLARITIN [Concomitant]
  10. ALTACE [Concomitant]
  11. NORVASC [Concomitant]

REACTIONS (7)
  - ASTHENIA [None]
  - DISORIENTATION [None]
  - DIZZINESS [None]
  - DYSARTHRIA [None]
  - GAIT DISTURBANCE [None]
  - HYPOTENSION [None]
  - LETHARGY [None]
